FAERS Safety Report 7352019 (Version 6)
Quarter: 2013Q1

REPORT INFORMATION
  Report Type: Report from Study
  Country: US (occurrence: US)
  Receive Date: 20100412
  Receipt Date: 20130205
  Transmission Date: 20140127
  Serious: Yes (Hospitalization, Other)
  Sender: FDA-Public Use
  Company Number: US-PFIZER INC-2010027637

PATIENT
  Age: 76 Year
  Sex: Female
  Weight: 58.96 kg

DRUGS (12)
  1. ZOLOFT [Suspect]
     Indication: ANXIETY
     Dosage: 50 MG, 1X/DAY
     Route: 048
  2. ZOLOFT [Suspect]
     Indication: DEPRESSION
  3. DETROL LA [Suspect]
     Indication: HYPERTONIC BLADDER
     Dosage: 4 MG, DAILY
     Route: 048
  4. DETROL LA [Suspect]
     Indication: BLADDER DISORDER
  5. CADUET [Suspect]
     Indication: HYPERTENSION
     Dosage: [AMLODIPINE 2.5MG]/[ATORVASTATIN 10MG], 1X/DAY
     Route: 048
     Dates: end: 20100720
  6. CADUET [Suspect]
     Indication: BLOOD CHOLESTEROL INCREASED
  7. CALAN [Suspect]
     Dosage: 240 MG, DAILY
     Route: 048
     Dates: start: 201002
  8. LIPITOR [Suspect]
     Indication: BLOOD CHOLESTEROL INCREASED
     Dosage: 10 MG, DAILY
     Route: 048
  9. DETROL [Concomitant]
     Indication: BLADDER DISORDER
     Dosage: 4 MG, 1X/DAY
     Route: 048
     Dates: start: 2009
  10. PACERONE [Concomitant]
     Indication: ATRIAL FIBRILLATION
     Dosage: 200 MG, DAILY
  11. NEXIUM [Concomitant]
     Indication: DYSPEPSIA
     Dosage: 40 MG, UNK
  12. ASPIRIN [Concomitant]
     Indication: ANTICOAGULANT THERAPY
     Dosage: 81 MG, 2X/DAY
     Route: 048

REACTIONS (7)
  - Cardiac arrest [Unknown]
  - Atrial fibrillation [Unknown]
  - Hypotension [Unknown]
  - Blood cholesterol increased [Unknown]
  - Hypertension [Unknown]
  - Hearing impaired [Unknown]
  - Hypertonic bladder [Unknown]
